FAERS Safety Report 24876247 (Version 1)
Quarter: 2025Q1

REPORT INFORMATION
  Report Type: Spontaneous
  Country: GR (occurrence: GR)
  Receive Date: 20250123
  Receipt Date: 20250123
  Transmission Date: 20250409
  Serious: Yes (Other)
  Sender: AMGEN
  Company Number: GR-AMGEN-GRCSP2025008451

PATIENT
  Age: 37 Year
  Sex: Female

DRUGS (2)
  1. BEVACIZUMAB [Suspect]
     Active Substance: BEVACIZUMAB
     Indication: Breast cancer metastatic
     Route: 065
  2. PACLITAXEL [Concomitant]
     Active Substance: PACLITAXEL
     Indication: Breast cancer metastatic
     Route: 065

REACTIONS (3)
  - Breast cancer metastatic [Recovering/Resolving]
  - Demyelination [Recovering/Resolving]
  - Radiation injury [Recovering/Resolving]
